FAERS Safety Report 16962088 (Version 1)
Quarter: 2019Q4

REPORT INFORMATION
  Report Type: Spontaneous
  Country: US (occurrence: US)
  Receive Date: 20190906
  Receipt Date: 20190906
  Transmission Date: 20200122
  Serious: No
  Sender: FDA-Public Use
  Company Number: None

PATIENT
  Age: 70 Year
  Sex: Female

DRUGS (1)
  1. STELARA [Suspect]
     Active Substance: USTEKINUMAB
     Indication: PSORIASIS
     Dosage: ?          OTHER DOSE:90;OTHER FREQUENCY:UNKNOWN;?
     Route: 058
     Dates: start: 201710

REACTIONS (4)
  - Therapy cessation [None]
  - Economic problem [None]
  - Pruritus [None]
  - Pain [None]

NARRATIVE: CASE EVENT DATE: 20190906
